FAERS Safety Report 8452125-1 (Version None)
Quarter: 2012Q2

REPORT INFORMATION
  Report Type: 
  Country: None (occurrence: None)
  Receive Date: 20120620
  Receipt Date: 20120611
  Transmission Date: 20120825
  Serious: Yes (Other)
  Sender: FDA-Public Use
  Company Number: US-GLAXOSMITHKLINE-A0980809A

PATIENT
  Age: 45 Year
  Sex: Female

DRUGS (5)
  1. UNSPECIFIED TREATMENT [Concomitant]
  2. VITAMIN TAB [Concomitant]
  3. ADVAIR DISKUS 100/50 [Suspect]
     Indication: ASTHMA
     Dosage: 1PUFF TWICE PER DAY
     Route: 055
     Dates: start: 20010101
  4. NASONEX [Concomitant]
  5. VENTOLIN HFA [Concomitant]

REACTIONS (6)
  - WHEEZING [None]
  - PRODUCT QUALITY ISSUE [None]
  - COUGH [None]
  - CHEST DISCOMFORT [None]
  - ASTHMA [None]
  - THROAT TIGHTNESS [None]
